FAERS Safety Report 19710915 (Version 38)
Quarter: 2024Q2

REPORT INFORMATION
  Report Type: Report from Study
  Country: CN (occurrence: CN)
  Receive Date: 20210817
  Receipt Date: 20240611
  Transmission Date: 20240717
  Serious: Yes (Death, Hospitalization, Other)
  Sender: FDA-Public Use
  Company Number: CN-TAKEDA-2021TUS050534

PATIENT
  Age: 66 Year
  Sex: Male
  Weight: 60 kg

DRUGS (36)
  1. IXAZOMIB [Suspect]
     Active Substance: IXAZOMIB
     Indication: Plasma cell myeloma
     Dosage: 4 MILLIGRAM, 1/WEEK
     Route: 048
     Dates: start: 20210519
  2. DEXAMETHASONE [Suspect]
     Active Substance: DEXAMETHASONE
     Indication: Plasma cell myeloma
     Dosage: UNK
     Route: 065
  3. POMALIDOMIDE [Suspect]
     Active Substance: POMALIDOMIDE
     Indication: Plasma cell myeloma
     Dosage: UNK
     Route: 065
  4. OPRELVEKIN [Suspect]
     Active Substance: OPRELVEKIN
     Indication: Plasma cell myeloma
     Dosage: UNK
     Route: 065
  5. ETOPOSIDE [Suspect]
     Active Substance: ETOPOSIDE
     Indication: Plasma cell myeloma
     Dosage: UNK
     Route: 065
     Dates: start: 20210817
  6. BENDAMUSTINE [Suspect]
     Active Substance: BENDAMUSTINE
     Indication: Plasma cell myeloma
     Dosage: UNK
     Route: 065
     Dates: start: 20210817
  7. MOXIFLOXACIN HYDROCHLORIDE [Concomitant]
     Active Substance: MOXIFLOXACIN HYDROCHLORIDE\MOXIFLOXACIN HYDROCHLORIDE MONOHYDRATE
     Indication: Pneumonia
     Dosage: 0.4 GRAM, QD
     Route: 042
     Dates: start: 20210520, end: 20210605
  8. CASPOFUNGIN ACETATE [Concomitant]
     Active Substance: CASPOFUNGIN ACETATE
     Indication: Pneumonia
     Dosage: 50 MILLIGRAM, QD
     Route: 042
     Dates: start: 20210528, end: 20210621
  9. ERYTHROPOIETIN [Concomitant]
     Active Substance: ERYTHROPOIETIN
     Indication: Anaemia
     Dosage: UNK, QD
     Route: 042
     Dates: start: 20210601, end: 20210630
  10. ERYTHROPOIETIN [Concomitant]
     Active Substance: ERYTHROPOIETIN
     Indication: White blood cell count decreased
  11. Compound glycyrrhizin [Concomitant]
     Indication: Liver disorder
     Dosage: 160 MILLIGRAM, QD
     Route: 042
     Dates: start: 20210601, end: 20210630
  12. Compound glycyrrhizin [Concomitant]
     Dosage: 160 MILLIGRAM, QD
     Route: 042
     Dates: start: 20210814, end: 20210923
  13. OMEPRAZOLE SODIUM [Concomitant]
     Active Substance: OMEPRAZOLE SODIUM
     Indication: Prophylaxis
     Dosage: 40 MILLIGRAM, 1/WEEK
     Route: 042
     Dates: start: 20210616, end: 20210630
  14. OXYCODONE AND ACETAMINOPHEN [Concomitant]
     Active Substance: ACETAMINOPHEN\OXYCODONE HYDROCHLORIDE
     Indication: Neuropathy peripheral
     Dosage: 5 MILLIGRAM
     Route: 048
     Dates: start: 20210614
  15. FENTANYL CITRATE [Concomitant]
     Active Substance: FENTANYL CITRATE
     Indication: Neuropathy peripheral
     Dosage: 8.25 MILLIGRAM
     Route: 062
     Dates: start: 20210614
  16. PALONOSETRON HYDROCHLORIDE [Concomitant]
     Active Substance: PALONOSETRON HYDROCHLORIDE
     Indication: Antiemetic supportive care
     Dosage: 0.25 MILLIGRAM, QD
     Route: 042
     Dates: start: 20210616, end: 20210616
  17. METHYLCOBALAMIN [Concomitant]
     Active Substance: METHYLCOBALAMIN
     Indication: Neuropathy peripheral
     Dosage: 500 MICROGRAM, 1/WEEK
     Route: 042
     Dates: start: 20210701, end: 20210724
  18. METHYLCOBALAMIN [Concomitant]
     Active Substance: METHYLCOBALAMIN
     Dosage: 500 MICROGRAM, QOD
     Route: 042
     Dates: start: 20210815, end: 20210923
  19. METHYLCOBALAMIN [Concomitant]
     Active Substance: METHYLCOBALAMIN
     Dosage: 500 MICROGRAM, QOD
     Route: 042
     Dates: start: 20211017, end: 20211120
  20. GANCICLOVIR [Concomitant]
     Active Substance: GANCICLOVIR
     Indication: Pneumonia
     Dosage: 0.25 GRAM
     Route: 042
     Dates: start: 20210606, end: 20210616
  21. GANCICLOVIR [Concomitant]
     Active Substance: GANCICLOVIR
     Dosage: 0.25 GRAM
     Route: 042
     Dates: start: 20210713, end: 20210716
  22. ILAPRAZOLE [Concomitant]
     Active Substance: ILAPRAZOLE
     Indication: Prophylaxis
     Dosage: 10 MILLIGRAM, QD
     Route: 048
     Dates: start: 20210701
  23. POTASSIUM CHLORIDE [Concomitant]
     Active Substance: POTASSIUM CHLORIDE
     Indication: Supplementation therapy
     Dosage: 1 GRAM, TID
     Route: 048
     Dates: start: 20210702
  24. SODIUM CHLORIDE [Concomitant]
     Active Substance: SODIUM CHLORIDE
     Indication: Fluid replacement
     Dosage: 250 MILLILITER, QD
     Route: 042
     Dates: start: 20210815, end: 20210923
  25. SODIUM CHLORIDE [Concomitant]
     Active Substance: SODIUM CHLORIDE
     Dosage: 250 MILLILITER, QD
     Route: 042
     Dates: start: 20211017, end: 20211120
  26. FAMOTIDINE [Concomitant]
     Active Substance: FAMOTIDINE
     Indication: Abdominal discomfort
     Dosage: 20 MILLIGRAM
     Route: 042
     Dates: start: 20210817, end: 20210830
  27. INCADRONATE DISODIUM [Concomitant]
     Active Substance: INCADRONATE DISODIUM
     Indication: Bone disorder
     Dosage: 5 MILLIGRAM, QD
     Route: 042
     Dates: start: 20210815, end: 20210815
  28. DIPHENHYDRAMINE HYDROCHLORIDE [Concomitant]
     Active Substance: DIPHENHYDRAMINE HYDROCHLORIDE
     Indication: Hypersensitivity
     Dosage: 20 MILLIGRAM, QD
     Route: 042
     Dates: start: 20210824, end: 20210825
  29. CALCIUM GLUCONATE AND VITAMIN D2 [Concomitant]
     Indication: Hypersensitivity
     Dosage: 10 MILLILITER, QD
     Route: 042
     Dates: start: 20210824, end: 20210824
  30. DOLASETRON MESYLATE [Concomitant]
     Active Substance: DOLASETRON MESYLATE
     Indication: Antiemetic supportive care
     Dosage: 50 MILLIGRAM, QD
     Route: 042
     Dates: start: 20211029, end: 20211031
  31. Hepatocyte Growth Promoting Factors [Concomitant]
     Indication: Prophylaxis
     Dosage: 120 MICROGRAM, QD
     Route: 042
     Dates: start: 20210528, end: 20210614
  32. PENTAZOCINE [Concomitant]
     Active Substance: PENTAZOCINE
     Indication: Analgesic therapy
     Dosage: 30 MILLIGRAM
     Route: 030
     Dates: start: 20211019, end: 20211023
  33. Sodium bicarbonate ringer^s [Concomitant]
     Dosage: 500 MILLILITER, QD
     Route: 042
     Dates: start: 20211022, end: 20211114
  34. PIPERACILLIN SODIUM\TAZOBACTAM SODIUM [Concomitant]
     Active Substance: PIPERACILLIN SODIUM\TAZOBACTAM SODIUM
     Indication: Pneumonia
     Dosage: 4.5 GRAM
     Route: 042
     Dates: start: 20211023, end: 20211025
  35. PIPERACILLIN SODIUM\TAZOBACTAM SODIUM [Concomitant]
     Active Substance: PIPERACILLIN SODIUM\TAZOBACTAM SODIUM
     Dosage: 4.5 GRAM
     Route: 042
     Dates: start: 20211025, end: 20211112
  36. DOLASETRON MESYLATE [Concomitant]
     Active Substance: DOLASETRON MESYLATE
     Indication: Antiemetic supportive care
     Dosage: 50 MILLIGRAM, QD
     Route: 042
     Dates: start: 20211029, end: 20211031

REACTIONS (32)
  - Cerebral infarction [Fatal]
  - White blood cell count decreased [Not Recovered/Not Resolved]
  - Hypokalaemia [Recovering/Resolving]
  - Hyperkalaemia [Recovering/Resolving]
  - Decreased appetite [Recovering/Resolving]
  - Blood creatinine increased [Not Recovered/Not Resolved]
  - Hypercalcaemia [Recovered/Resolved]
  - Hypoproteinaemia [Recovering/Resolving]
  - Anaemia [Not Recovered/Not Resolved]
  - Lymphocyte count decreased [Not Recovered/Not Resolved]
  - Neutrophil count decreased [Not Recovered/Not Resolved]
  - Vomiting [Recovering/Resolving]
  - Constipation [Recovered/Resolved]
  - Abdominal pain [Recovering/Resolving]
  - C-reactive protein increased [Recovering/Resolving]
  - Pain in jaw [Not Recovered/Not Resolved]
  - Blood glucose decreased [Recovering/Resolving]
  - Blood lactate dehydrogenase increased [Not Recovered/Not Resolved]
  - Alpha hydroxybutyrate dehydrogenase increased [Not Recovered/Not Resolved]
  - Hyponatraemia [Recovering/Resolving]
  - Blood glucose increased [Recovering/Resolving]
  - Musculoskeletal chest pain [Not Recovered/Not Resolved]
  - Blood uric acid increased [Recovered/Resolved]
  - Blood urea increased [Not Recovered/Not Resolved]
  - Blood bilirubin increased [Not Recovered/Not Resolved]
  - Dizziness [Recovering/Resolving]
  - Aspartate aminotransferase increased [Recovering/Resolving]
  - Back pain [Not Recovered/Not Resolved]
  - Oedema peripheral [Not Recovered/Not Resolved]
  - Upper respiratory tract infection [Recovering/Resolving]
  - Nausea [Recovering/Resolving]
  - Off label use [Unknown]

NARRATIVE: CASE EVENT DATE: 20210520
